FAERS Safety Report 5762832-7 (Version None)
Quarter: 2008Q2

REPORT INFORMATION
  Report Type: 
  Country: None (occurrence: None)
  Receive Date: 20080528
  Receipt Date: 20080404
  Transmission Date: 20081010
  Serious: Yes (Other)
  Sender: FDA-Public Use
  Company Number: PHEH2008US03458

PATIENT
  Sex: Female

DRUGS (1)
  1. TASIGNA [Suspect]

REACTIONS (1)
  - PNEUMONIA [None]
